FAERS Safety Report 9738229 (Version 1)
Quarter: 2013Q4

REPORT INFORMATION
  Report Type: Spontaneous
  Country: NL (occurrence: NL)
  Receive Date: 20131208
  Receipt Date: 20131208
  Transmission Date: 20140711
  Serious: Yes (Hospitalization)
  Sender: FDA-Public Use
  Company Number: NL-TEVA-447779ISR

PATIENT
  Age: 50 Year
  Sex: Female

DRUGS (4)
  1. CALCIUM CARBONATE [Suspect]
     Dosage: 3000 MILLIGRAM DAILY; 3000 MG/DAY
     Route: 065
  2. HYDROCHLOROTHIAZIDE [Suspect]
     Route: 065
  3. PAMIDRONIC ACID [Suspect]
     Route: 065
  4. DIHYDROTACHYSTEROL [Suspect]
     Dosage: 4 MILLIGRAM DAILY; 0.4 MG/DAY
     Route: 065

REACTIONS (1)
  - Hypocalcaemia [Recovering/Resolving]
